FAERS Safety Report 13693679 (Version 1)
Quarter: 2017Q2

REPORT INFORMATION
  Report Type: Spontaneous
  Country: DE (occurrence: DE)
  Receive Date: 20170627
  Receipt Date: 20170627
  Transmission Date: 20170830
  Serious: Yes (Hospitalization, Other)
  Sender: FDA-Public Use
  Company Number: DE-BAYER-2017-118015

PATIENT
  Age: 28 Year
  Sex: Female

DRUGS (1)
  1. MIRENA [Suspect]
     Active Substance: LEVONORGESTREL
     Dosage: 20 MCG/24HR, CONT
     Route: 015
     Dates: start: 20150417

REACTIONS (10)
  - Loss of libido [Not Recovered/Not Resolved]
  - Genital haemorrhage [Not Recovered/Not Resolved]
  - Infection [Not Recovered/Not Resolved]
  - Tachycardia [Not Recovered/Not Resolved]
  - Hypotension [Not Recovered/Not Resolved]
  - Chest pain [Not Recovered/Not Resolved]
  - Headache [Recovering/Resolving]
  - Emotional disorder [Not Recovered/Not Resolved]
  - Abdominal pain lower [Not Recovered/Not Resolved]
  - Vaginal discharge [Not Recovered/Not Resolved]
